FAERS Safety Report 10029004 (Version 1)
Quarter: 2014Q1

REPORT INFORMATION
  Report Type: Report from Study
  Country: BR (occurrence: BR)
  Receive Date: 20140321
  Receipt Date: 20140321
  Transmission Date: 20141002
  Serious: Yes (Hospitalization)
  Sender: FDA-Public Use
  Company Number: PHHY2014BR033544

PATIENT
  Sex: Female
  Weight: 40 kg

DRUGS (6)
  1. EXJADE [Suspect]
     Indication: IRON OVERLOAD
     Dosage: 250 MG, DAILY (1 TABLET)
     Dates: end: 2013
  2. EXJADE [Suspect]
     Dosage: 500 MG, DAILY (1 TABLET)
     Dates: end: 2013
  3. EXJADE [Suspect]
     Dosage: 250 MG, DAILY (1 TABLET)
     Dates: start: 201401
  4. EXJADE [Suspect]
     Dosage: 500 MG, DAILY (1 TABLET)
  5. PARACETAMOL [Concomitant]
     Indication: PAIN
     Dosage: 1 DF, IF PRESENTED PAIN/DAILY
  6. PARACETAMOL [Concomitant]
     Dosage: 1 DF, EVERY 6 HOURS

REACTIONS (2)
  - Pain [Recovering/Resolving]
  - Anaemia [Recovering/Resolving]
